FAERS Safety Report 12459538 (Version 1)
Quarter: 2016Q2

REPORT INFORMATION
  Report Type: Spontaneous
  Country: US (occurrence: US)
  Receive Date: 20160613
  Receipt Date: 20160613
  Transmission Date: 20160815
  Serious: Yes (Other)
  Sender: FDA-Public Use
  Company Number: US-BAYER-2016-112858

PATIENT
  Age: 60 Year
  Sex: Female
  Weight: 58.5 kg

DRUGS (2)
  1. VITAMIN D [Concomitant]
     Active Substance: CHOLECALCIFEROL
     Dosage: UNK
  2. CLARITIN [Suspect]
     Active Substance: LORATADINE
     Indication: SNEEZING
     Dosage: 0.25 DF, ONCE
     Route: 048
     Dates: start: 20160607, end: 20160607

REACTIONS (11)
  - Choking [Recovered/Resolved]
  - Thirst [Recovered/Resolved]
  - Dehydration [Recovered/Resolved]
  - Somnolence [Not Recovered/Not Resolved]
  - Somnolence [None]
  - Feeling abnormal [Recovered/Resolved]
  - Unevaluable event [Recovered/Resolved]
  - Dizziness [Recovered/Resolved]
  - Dry throat [Not Recovered/Not Resolved]
  - Dry mouth [Recovered/Resolved]
  - Product use issue [None]

NARRATIVE: CASE EVENT DATE: 20160607
